FAERS Safety Report 15250126 (Version 1)
Quarter: 2018Q3

REPORT INFORMATION
  Report Type: Spontaneous
  Country: US (occurrence: US)
  Receive Date: 20180716
  Receipt Date: 20180716
  Transmission Date: 20181010
  Serious: No
  Sender: FDA-Public Use
  Company Number: None

PATIENT
  Sex: Female

DRUGS (2)
  1. PENICILLIN [Suspect]
     Active Substance: PENICILLIN
  2. ERYTHROMYCIN DERIVATIVES [Suspect]
     Active Substance: UNSPECIFIED INGREDIENT

REACTIONS (5)
  - Rash [None]
  - Throat tightness [None]
  - Drug hypersensitivity [None]
  - Hypersensitivity [None]
  - Pharyngeal oedema [None]
